FAERS Safety Report 19362165 (Version 3)
Quarter: 2021Q4

REPORT INFORMATION
  Report Type: Report from Study
  Country: KR (occurrence: KR)
  Receive Date: 20210603
  Receipt Date: 20211117
  Transmission Date: 20220303
  Serious: Yes (Other)
  Sender: FDA-Public Use
  Company Number: KR-KYOWAKIRIN-2021AKK009346

PATIENT
  Age: 55 Year
  Sex: Male

DRUGS (120)
  1. FILGRASTIM [Suspect]
     Active Substance: FILGRASTIM
     Indication: Product used for unknown indication
     Dosage: 450 MILLIGRAM
     Route: 065
     Dates: start: 20110313, end: 20110315
  2. DECITABINE [Concomitant]
     Active Substance: DECITABINE
     Indication: Product used for unknown indication
     Dosage: 20 UNK, QD
     Dates: start: 20110214, end: 20110214
  3. DECITABINE [Concomitant]
     Active Substance: DECITABINE
     Dosage: 20 UNK, QD
     Dates: start: 20110215, end: 20110215
  4. DECITABINE [Concomitant]
     Active Substance: DECITABINE
     Dosage: 20 UNK, QD
     Dates: start: 20110216, end: 20110216
  5. DECITABINE [Concomitant]
     Active Substance: DECITABINE
     Dosage: 20 UNK, QD
     Dates: start: 20110217, end: 20110217
  6. DECITABINE [Concomitant]
     Active Substance: DECITABINE
     Dosage: 20 UNK, QD
     Dates: start: 20110218, end: 20110218
  7. DECITABINE [Concomitant]
     Active Substance: DECITABINE
     Dosage: 20 UNK, QD
     Dates: start: 20110405, end: 20110405
  8. DECITABINE [Concomitant]
     Active Substance: DECITABINE
     Dosage: 20 UNK, QD
     Dates: start: 20110406, end: 20110406
  9. DECITABINE [Concomitant]
     Active Substance: DECITABINE
     Dosage: 20 UNK, QD
     Dates: start: 20110407, end: 20110407
  10. DECITABINE [Concomitant]
     Active Substance: DECITABINE
     Dosage: 20 UNK, QD
     Dates: start: 20110502, end: 20110502
  11. DECITABINE [Concomitant]
     Active Substance: DECITABINE
     Dosage: 20 UNK, QD
     Dates: start: 20110503, end: 20110503
  12. DECITABINE [Concomitant]
     Active Substance: DECITABINE
     Dosage: 20 UNK, QD
     Dates: start: 20110504, end: 20110504
  13. DECITABINE [Concomitant]
     Active Substance: DECITABINE
     Dosage: 20 UNK, QD
     Dates: start: 20110530, end: 20110530
  14. DECITABINE [Concomitant]
     Active Substance: DECITABINE
     Dosage: 20 UNK, QD
     Dates: start: 20110531, end: 20110531
  15. DECITABINE [Concomitant]
     Active Substance: DECITABINE
     Dosage: 20 UNK, QD
     Dates: start: 20110601, end: 20110601
  16. UNSPECIFIED INGREDIENT [Concomitant]
     Active Substance: UNSPECIFIED INGREDIENT
     Indication: Product used for unknown indication
     Dosage: UNK
     Dates: start: 20110418, end: 20110707
  17. INSULINS AND ANALOGUES FOR INJECTION, FAST-ACTING [Concomitant]
     Indication: Product used for unknown indication
     Dosage: 18 UNK
     Dates: start: 20110320, end: 20110320
  18. INSULINS AND ANALOGUES FOR INJECTION, FAST-ACTING [Concomitant]
     Dosage: 18 UNK
     Dates: start: 20110319, end: 20110319
  19. INSULINS AND ANALOGUES FOR INJECTION, FAST-ACTING [Concomitant]
     Dosage: 18 UNK
     Dates: start: 20110321, end: 20110321
  20. VITAMIN B-COMPLEX WITH VITAMIN C [ASCORBIC ACID;BIOTIN;CALCIUM PANTOTH [Concomitant]
     Indication: Product used for unknown indication
     Dosage: 1 DOSAGE FORM
     Dates: start: 20110418, end: 20110706
  21. AMPHOTERICIN B [Concomitant]
     Active Substance: AMPHOTERICIN B
     Indication: Product used for unknown indication
     Dosage: 34.25 MILLIGRAM
     Dates: start: 20110318, end: 20110318
  22. AMPHOTERICIN B [Concomitant]
     Active Substance: AMPHOTERICIN B
     Dosage: 34.5 MILLIGRAM
     Dates: start: 20110317, end: 20110317
  23. AMPHOTERICIN B [Concomitant]
     Active Substance: AMPHOTERICIN B
     Dosage: 34.6 MILLIGRAM
     Dates: start: 20110319, end: 20110319
  24. AMPHOTERICIN B [Concomitant]
     Active Substance: AMPHOTERICIN B
     Dosage: 34.75 MILLIGRAM
     Dates: start: 20110314, end: 20110314
  25. AMPHOTERICIN B [Concomitant]
     Active Substance: AMPHOTERICIN B
     Dosage: 35 MILLIGRAM
     Dates: start: 20110316, end: 20110316
  26. AMPHOTERICIN B [Concomitant]
     Active Substance: AMPHOTERICIN B
     Dosage: 35 MILLIGRAM
     Dates: start: 20110320, end: 20110320
  27. AMPHOTERICIN B [Concomitant]
     Active Substance: AMPHOTERICIN B
     Dosage: 35.25 MILLIGRAM
     Dates: start: 20110315, end: 20110315
  28. CEFAZOLIN [Concomitant]
     Active Substance: CEFAZOLIN
     Indication: Product used for unknown indication
     Dosage: 6000 MILLIGRAM
     Dates: start: 20110312, end: 20110312
  29. CEFOTAXIME [Concomitant]
     Active Substance: CEFOTAXIME SODIUM
     Indication: Product used for unknown indication
     Dosage: 6000 MILLIGRAM
     Dates: start: 20110709, end: 20110711
  30. CEFTAZIDIME [Concomitant]
     Active Substance: CEFTAZIDIME
     Indication: Product used for unknown indication
     Dosage: 400 MILLIGRAM
     Dates: start: 20110320, end: 20110321
  31. CEFTAZIDIME [Concomitant]
     Active Substance: CEFTAZIDIME
     Dosage: 400 MILLIGRAM
     Dates: start: 20110312, end: 20110312
  32. CHLORPHENIRAMINE MALEATE [Concomitant]
     Active Substance: CHLORPHENIRAMINE MALEATE
     Indication: Product used for unknown indication
     Dosage: 4 MILLIGRAM
     Dates: start: 20110214, end: 20110214
  33. CHLORPHENIRAMINE MALEATE [Concomitant]
     Active Substance: CHLORPHENIRAMINE MALEATE
     Dosage: 4 MILLIGRAM
     Dates: start: 20110214, end: 20110218
  34. CHLORPHENIRAMINE MALEATE [Concomitant]
     Active Substance: CHLORPHENIRAMINE MALEATE
     Dosage: 4 MILLIGRAM
     Dates: start: 20110221, end: 20110221
  35. CHLORPHENIRAMINE MALEATE [Concomitant]
     Active Substance: CHLORPHENIRAMINE MALEATE
     Dosage: 4 MILLIGRAM
     Dates: start: 20110228, end: 20110228
  36. CHLORPHENIRAMINE MALEATE [Concomitant]
     Active Substance: CHLORPHENIRAMINE MALEATE
     Dosage: 4 MILLIGRAM
     Dates: start: 20110312, end: 20110312
  37. CHLORPHENIRAMINE MALEATE [Concomitant]
     Active Substance: CHLORPHENIRAMINE MALEATE
     Dosage: 4 MILLIGRAM
     Dates: start: 20110314, end: 20110323
  38. CHLORPHENIRAMINE MALEATE [Concomitant]
     Active Substance: CHLORPHENIRAMINE MALEATE
     Dosage: 4 MILLIGRAM
     Dates: start: 20110405, end: 20110405
  39. CHLORPHENIRAMINE MALEATE [Concomitant]
     Active Substance: CHLORPHENIRAMINE MALEATE
     Dosage: 4 MILLIGRAM
     Dates: start: 20110502, end: 20110502
  40. CHLORPHENIRAMINE MALEATE [Concomitant]
     Active Substance: CHLORPHENIRAMINE MALEATE
     Dosage: 4 MILLIGRAM
     Dates: start: 20110509, end: 20110509
  41. CHLORPHENIRAMINE MALEATE [Concomitant]
     Active Substance: CHLORPHENIRAMINE MALEATE
     Dosage: 4 MILLIGRAM
     Dates: start: 20110530, end: 20110530
  42. CHLORPHENIRAMINE MALEATE [Concomitant]
     Active Substance: CHLORPHENIRAMINE MALEATE
     Dosage: 4 MILLIGRAM
     Dates: start: 20110620, end: 20110620
  43. CHLORPHENIRAMINE MALEATE [Concomitant]
     Active Substance: CHLORPHENIRAMINE MALEATE
     Dosage: 4 MILLIGRAM
     Dates: start: 20110627, end: 20110627
  44. CHLORPHENIRAMINE MALEATE [Concomitant]
     Active Substance: CHLORPHENIRAMINE MALEATE
     Dosage: 4 MILLIGRAM
     Dates: start: 20110313, end: 20110313
  45. CHLORPHENIRAMINE MALEATE [Concomitant]
     Active Substance: CHLORPHENIRAMINE MALEATE
     Dosage: 8 MILLIGRAM
     Dates: start: 20110418, end: 20110418
  46. CHLORPHENIRAMINE MALEATE [Concomitant]
     Active Substance: CHLORPHENIRAMINE MALEATE
     Dosage: 8 MILLIGRAM
     Dates: start: 20110425, end: 20110425
  47. CHLORPHENIRAMINE MALEATE [Concomitant]
     Active Substance: CHLORPHENIRAMINE MALEATE
     Dosage: 8 MILLIGRAM
     Dates: start: 20110523, end: 20110523
  48. CHLORPHENIRAMINE MALEATE [Concomitant]
     Active Substance: CHLORPHENIRAMINE MALEATE
     Dosage: 8 MILLIGRAM
     Dates: start: 20110704, end: 20110704
  49. CHLORPHENIRAMINE MALEATE [Concomitant]
     Active Substance: CHLORPHENIRAMINE MALEATE
     Dosage: 8 MILLIGRAM
     Dates: start: 20110613, end: 20110613
  50. CHLORPHENIRAMINE MALEATE [Concomitant]
     Active Substance: CHLORPHENIRAMINE MALEATE
     Dosage: 8 MILLIGRAM
     Dates: start: 20110412, end: 20110412
  51. CIPROFLOXACIN [Concomitant]
     Active Substance: CIPROFLOXACIN
     Indication: Product used for unknown indication
     Dosage: 1000 MILLIGRAM
     Dates: start: 20110214, end: 20110312
  52. CIPROFLOXACIN [Concomitant]
     Active Substance: CIPROFLOXACIN
     Dosage: 1000 MILLIGRAM
     Dates: start: 20110405, end: 20110501
  53. CIPROFLOXACIN [Concomitant]
     Active Substance: CIPROFLOXACIN
     Dosage: 1000 MILLIGRAM
     Dates: start: 20110502, end: 20110529
  54. CIPROFLOXACIN [Concomitant]
     Active Substance: CIPROFLOXACIN
     Dosage: 1000 MILLIGRAM
     Dates: start: 20110530, end: 20110626
  55. FAMOTIDINE [Concomitant]
     Active Substance: FAMOTIDINE
     Indication: Product used for unknown indication
     Dosage: 40 MILLIGRAM
     Dates: start: 20110313, end: 20110319
  56. FAMOTIDINE [Concomitant]
     Active Substance: FAMOTIDINE
     Dosage: 40 MILLIGRAM
     Dates: start: 20110320, end: 20110404
  57. FAMOTIDINE [Concomitant]
     Active Substance: FAMOTIDINE
     Dosage: 40 MILLIGRAM
     Dates: start: 20110708, end: 20110711
  58. FLUCONAZOLE [Concomitant]
     Active Substance: FLUCONAZOLE
     Indication: Product used for unknown indication
     Dosage: 200 MILLIGRAM
     Dates: start: 20110214, end: 20110314
  59. FLUCONAZOLE [Concomitant]
     Active Substance: FLUCONAZOLE
     Dosage: 200 MILLIGRAM
     Dates: start: 20110405, end: 20110501
  60. FLUCONAZOLE [Concomitant]
     Active Substance: FLUCONAZOLE
     Dosage: 200 MILLIGRAM
     Dates: start: 20110502, end: 20110529
  61. FLUCONAZOLE [Concomitant]
     Active Substance: FLUCONAZOLE
     Dosage: 200 MILLIGRAM
     Dates: start: 20110530, end: 20110626
  62. FUROSEMIDE [Concomitant]
     Active Substance: FUROSEMIDE
     Indication: Product used for unknown indication
     Dosage: 40 MILLIGRAM
     Dates: start: 20110314, end: 20110314
  63. HEPARIN [Concomitant]
     Active Substance: HEPARIN SODIUM
     Indication: Product used for unknown indication
     Dosage: 5000 UNK
     Dates: start: 20110314, end: 20110315
  64. HYDROCORTISONE [Concomitant]
     Active Substance: HYDROCORTISONE
     Indication: Product used for unknown indication
     Dosage: 50 MILLIGRAM
     Dates: start: 20110708, end: 20110708
  65. HYDROCORTISONE [Concomitant]
     Active Substance: HYDROCORTISONE
     Dosage: 100 MILLIGRAM
     Dates: start: 20110312, end: 20110312
  66. HYDROCORTISONE [Concomitant]
     Active Substance: HYDROCORTISONE
     Dosage: 100 MILLIGRAM
     Dates: start: 20110709, end: 20110710
  67. IMIPENEM AND CILASTATIN [Concomitant]
     Active Substance: CILASTATIN SODIUM\IMIPENEM
     Indication: Product used for unknown indication
     Dosage: 500 MILLIGRAM
     Dates: start: 20110320, end: 20110321
  68. IMIPENEM AND CILASTATIN [Concomitant]
     Active Substance: CILASTATIN SODIUM\IMIPENEM
     Dosage: 500 MILLIGRAM
     Dates: start: 20110324, end: 20110324
  69. IMIPENEM AND CILASTATIN [Concomitant]
     Active Substance: CILASTATIN SODIUM\IMIPENEM
     Dosage: 500 MILLIGRAM
     Dates: start: 20110313, end: 20110313
  70. IMIPENEM AND CILASTATIN [Concomitant]
     Active Substance: CILASTATIN SODIUM\IMIPENEM
     Dosage: 2000 MILLIGRAM
     Dates: start: 20110314, end: 20110319
  71. IMIPENEM AND CILASTATIN [Concomitant]
     Active Substance: CILASTATIN SODIUM\IMIPENEM
     Dosage: 2000 MILLIGRAM
     Dates: start: 20110323, end: 20110323
  72. IMIPENEM AND CILASTATIN [Concomitant]
     Active Substance: CILASTATIN SODIUM\IMIPENEM
     Dosage: 2500 MILLIGRAM
     Dates: start: 20110322, end: 20110322
  73. INSULIN NOS [Concomitant]
     Active Substance: INSULIN NOS
     Indication: Product used for unknown indication
     Dosage: UNK
     Dates: start: 20110317, end: 20110317
  74. INSULIN NOS [Concomitant]
     Active Substance: INSULIN NOS
     Dosage: UNK
     Dates: start: 20110317, end: 20110317
  75. INSULIN NOS [Concomitant]
     Active Substance: INSULIN NOS
     Dosage: 30 UNK
     Dates: start: 20110318, end: 20110318
  76. INSULIN GLARGINE [Concomitant]
     Active Substance: INSULIN GLARGINE
     Indication: Product used for unknown indication
     Dosage: 12 UNK
     Dates: start: 20110331, end: 20110417
  77. INSULIN GLARGINE [Concomitant]
     Active Substance: INSULIN GLARGINE
     Dosage: 14 UNK
     Dates: start: 20110323, end: 20110329
  78. INSULIN GLARGINE [Concomitant]
     Active Substance: INSULIN GLARGINE
     Dosage: 14 UNK
     Dates: start: 20110418
  79. INSULIN GLARGINE [Concomitant]
     Active Substance: INSULIN GLARGINE
     Dosage: 16 UNK
     Dates: start: 20110319, end: 20110319
  80. INSULIN GLARGINE [Concomitant]
     Active Substance: INSULIN GLARGINE
     Dosage: 16 UNK
     Dates: start: 20110321, end: 20110322
  81. INSULIN GLARGINE [Concomitant]
     Active Substance: INSULIN GLARGINE
     Dosage: 16 UNK
     Dates: start: 20110320, end: 20110320
  82. LACTULOSE [Concomitant]
     Active Substance: LACTULOSE
     Indication: Product used for unknown indication
     Dosage: 180 UNK
     Dates: start: 20110708, end: 20110711
  83. LACTULOSE [Concomitant]
     Active Substance: LACTULOSE
     Dosage: 200 UNK
     Dates: start: 20110708, end: 20110709
  84. LEVOFLOXACIN [Concomitant]
     Active Substance: LEVOFLOXACIN
     Indication: Product used for unknown indication
     Dosage: 750 MILLIGRAM
     Dates: start: 20110402, end: 20110406
  85. LEVOFLOXACIN [Concomitant]
     Active Substance: LEVOFLOXACIN
     Dosage: 750 MILLIGRAM
     Dates: start: 20110401, end: 20110401
  86. LEVOFLOXACIN [Concomitant]
     Active Substance: LEVOFLOXACIN
     Dosage: 750 MILLIGRAM
     Dates: start: 20110325, end: 20110406
  87. MEGESTROL [Concomitant]
     Active Substance: MEGESTROL
     Indication: Product used for unknown indication
     Dosage: 10 UNK
     Dates: start: 20110620, end: 20110626
  88. MEGESTROL [Concomitant]
     Active Substance: MEGESTROL
     Dosage: 20 UNK
     Dates: start: 20110405, end: 20110411
  89. METHYLPREDNISOLONE [Concomitant]
     Active Substance: METHYLPREDNISOLONE
     Indication: Product used for unknown indication
     Dosage: 20 MILLIGRAM
     Dates: start: 20110314, end: 20110320
  90. NOREPINEPHRINE [Concomitant]
     Active Substance: NOREPINEPHRINE
     Indication: Product used for unknown indication
     Dosage: 20 MILLIGRAM
     Dates: start: 20110312, end: 20110313
  91. ONDANSETRON [Concomitant]
     Active Substance: ONDANSETRON
     Indication: Product used for unknown indication
     Dosage: 8 MILLIGRAM
     Dates: start: 20110214, end: 20110214
  92. ONDANSETRON [Concomitant]
     Active Substance: ONDANSETRON
     Dosage: 8 MILLIGRAM
     Dates: start: 20110405, end: 20110407
  93. ONDANSETRON [Concomitant]
     Active Substance: ONDANSETRON
     Dosage: 8 MILLIGRAM
     Dates: start: 20110502, end: 20110504
  94. ONDANSETRON [Concomitant]
     Active Substance: ONDANSETRON
     Dosage: 8 MILLIGRAM
     Dates: start: 20110530, end: 20110601
  95. MEPERIDINE [Concomitant]
     Active Substance: MEPERIDINE
     Indication: Product used for unknown indication
     Dosage: 25 MILLIGRAM
     Dates: start: 20110708, end: 20110708
  96. PHYTONADIONE [Concomitant]
     Active Substance: PHYTONADIONE
     Indication: Product used for unknown indication
     Dosage: 10 MILLIGRAM
     Dates: start: 20110313, end: 20110315
  97. POTASSIUM CHLORIDE [Concomitant]
     Active Substance: POTASSIUM CHLORIDE
     Indication: Product used for unknown indication
     Dosage: 3600 MILLIGRAM
     Dates: start: 20110319, end: 20110322
  98. PROPACETAMOL [Concomitant]
     Active Substance: PROPACETAMOL
     Indication: Product used for unknown indication
     Dosage: 500 MILLIGRAM
     Dates: start: 20110314, end: 20110315
  99. PROPACETAMOL [Concomitant]
     Active Substance: PROPACETAMOL
     Dosage: 1000 MILLIGRAM
     Dates: start: 20110313, end: 20110313
  100. QUETIAPINE [Concomitant]
     Active Substance: QUETIAPINE
     Indication: Product used for unknown indication
     Dosage: 25 MILLIGRAM
     Dates: start: 20110710, end: 20110710
  101. REPAGLINIDE [Concomitant]
     Active Substance: REPAGLINIDE
     Indication: Product used for unknown indication
     Dosage: 2 MILLIGRAM
     Dates: start: 20110323, end: 20110323
  102. REPAGLINIDE [Concomitant]
     Active Substance: REPAGLINIDE
     Dosage: 3 MILLIGRAM
     Dates: start: 20110324
  103. SILYMARIN 100 [Concomitant]
     Indication: Product used for unknown indication
     Dosage: 140 MILLIGRAM
     Dates: start: 20110313, end: 20110313
  104. SILYMARIN 100 [Concomitant]
     Dosage: 280 MILLIGRAM
     Dates: start: 20110314, end: 20110330
  105. SILYMARIN 100 [Concomitant]
     Dosage: 280 MILLIGRAM
     Dates: start: 20110418, end: 20110711
  106. TRANEXAMIC ACID [Concomitant]
     Active Substance: TRANEXAMIC ACID
     Indication: Product used for unknown indication
     Dosage: 500 MILLIGRAM
     Dates: start: 20110312, end: 20110312
  107. TRANEXAMIC ACID [Concomitant]
     Active Substance: TRANEXAMIC ACID
     Dosage: 1000 MILLIGRAM
     Dates: start: 20110315, end: 20110315
  108. TRANEXAMIC ACID [Concomitant]
     Active Substance: TRANEXAMIC ACID
     Dosage: 1000 MILLIGRAM
     Dates: start: 20110313, end: 20110314
  109. TRIAMCINOLONE [Concomitant]
     Active Substance: TRIAMCINOLONE
     Indication: Product used for unknown indication
     Dosage: 2 UNK
     Dates: start: 20110321, end: 20110329
  110. TRIAMCINOLONE [Concomitant]
     Active Substance: TRIAMCINOLONE
     Dosage: 2 UNK
     Dates: start: 20110313, end: 20110320
  111. URSODIOL [Concomitant]
     Active Substance: URSODIOL
     Indication: Product used for unknown indication
     Dosage: 200 MILLIGRAM
     Dates: start: 20110313, end: 20110313
  112. URSODIOL [Concomitant]
     Active Substance: URSODIOL
     Dosage: 600 MILLIGRAM
     Dates: start: 20110314, end: 20110330
  113. VANCOMYCIN [Concomitant]
     Active Substance: VANCOMYCIN
     Indication: Product used for unknown indication
     Dosage: 1000 MILLIGRAM
     Dates: start: 20110316, end: 20110316
  114. VANCOMYCIN [Concomitant]
     Active Substance: VANCOMYCIN
     Dosage: 1000 MILLIGRAM
     Dates: start: 20110321, end: 20110321
  115. VANCOMYCIN [Concomitant]
     Active Substance: VANCOMYCIN
     Dosage: 1000 MILLIGRAM
     Dates: start: 20110323, end: 20110323
  116. VANCOMYCIN [Concomitant]
     Active Substance: VANCOMYCIN
     Dosage: 2000 MILLIGRAM
     Dates: start: 20110313, end: 20110315
  117. VANCOMYCIN [Concomitant]
     Active Substance: VANCOMYCIN
     Dosage: 2000 MILLIGRAM
     Dates: start: 20110322, end: 20110322
  118. VORICONAZOLE [Concomitant]
     Active Substance: VORICONAZOLE
     Indication: Product used for unknown indication
     Dosage: 200 MILLIGRAM
     Dates: start: 20110324, end: 20110324
  119. VORICONAZOLE [Concomitant]
     Active Substance: VORICONAZOLE
     Dosage: 400 MILLIGRAM
     Dates: start: 20110321, end: 20110323
  120. VORICONAZOLE [Concomitant]
     Active Substance: VORICONAZOLE
     Dosage: 400 MILLIGRAM
     Dates: start: 20110325, end: 20110404

REACTIONS (37)
  - Neutropenia [Recovered/Resolved]
  - Atypical pneumonia [Not Recovered/Not Resolved]
  - Aspergillus infection [Not Recovered/Not Resolved]
  - Hypokalaemia [Recovered/Resolved]
  - Hypoacusis [Recovered/Resolved]
  - Scrotal irritation [Not Recovered/Not Resolved]
  - Epistaxis [Recovered/Resolved]
  - Constipation [Recovered/Resolved]
  - Gait inability [Recovered/Resolved]
  - Dizziness [Recovered/Resolved]
  - Agitation [Recovered/Resolved]
  - Sputum increased [Recovered/Resolved]
  - Hyperglycaemia [Recovered/Resolved]
  - Hyperglycaemia [Recovered/Resolved]
  - Cough [Recovered/Resolved]
  - Cough [Recovered/Resolved]
  - Anaemia [Recovered/Resolved]
  - Anaemia [Recovered/Resolved]
  - Dyspnoea [Recovered/Resolved]
  - Dyspnoea [Recovered/Resolved]
  - Pleuritic pain [Recovered/Resolved]
  - Pleuritic pain [Recovered/Resolved]
  - Blood bilirubin increased [Recovered/Resolved]
  - Blood bilirubin increased [Recovered/Resolved]
  - Arthralgia [Recovered/Resolved]
  - Platelet count decreased [Recovered/Resolved]
  - Chest pain [Recovered/Resolved]
  - Hypotension [Recovered/Resolved]
  - Blood pressure decreased [Recovered/Resolved]
  - Mouth ulceration [Recovered/Resolved]
  - Purpura [Recovered/Resolved]
  - Dyspnoea [Recovered/Resolved]
  - Haemoptysis [Recovered/Resolved]
  - Pleural effusion [Recovered/Resolved]
  - Chills [Recovered/Resolved]
  - Pyrexia [Recovered/Resolved]
  - Blood pressure decreased [Recovered/Resolved]

NARRATIVE: CASE EVENT DATE: 20110214
